FAERS Safety Report 13961710 (Version 1)
Quarter: 2017Q3

REPORT INFORMATION
  Report Type: Spontaneous
  Country: US (occurrence: US)
  Receive Date: 20170912
  Receipt Date: 20170912
  Transmission Date: 20171128
  Serious: No
  Sender: FDA-Public Use
  Company Number: PHEH2017US029237

PATIENT
  Age: 34 Year
  Sex: Male

DRUGS (1)
  1. PROMACTA [Suspect]
     Active Substance: ELTROMBOPAG OLAMINE
     Indication: MALAISE
     Dosage: 75 MG, QD
     Route: 048
     Dates: start: 20170629

REACTIONS (1)
  - Diarrhoea [Unknown]
